FAERS Safety Report 7120509-X (Version None)
Quarter: 2010Q4

REPORT INFORMATION
  Report Type: 
  Country: None (occurrence: None)
  Receive Date: 20101119
  Receipt Date: 20101119
  Transmission Date: 20110411
  Serious: Yes (Other)
  Sender: FDA-Public Use
  Company Number: None

PATIENT
  Sex: Male
  Weight: 29.2 kg

DRUGS (1)
  1. ADVATE [Suspect]
     Indication: FACTOR VIII DEFICIENCY
     Dosage: 1090 UNITS EVERY OTHER DAY IV
     Route: 042
     Dates: start: 20090612, end: 20090612

REACTIONS (3)
  - CHEST PAIN [None]
  - CYANOSIS [None]
  - UNEVALUABLE EVENT [None]
